FAERS Safety Report 6578562-8 (Version None)
Quarter: 2010Q1

REPORT INFORMATION
  Report Type: 
  Country: None (occurrence: None)
  Receive Date: 20100211
  Receipt Date: 20100209
  Transmission Date: 20100710
  Serious: Yes (Hospitalization, Other)
  Sender: FDA-Public Use
  Company Number: CA-ROXANE LABORATORIES, INC.-2010-RO-00143RO

PATIENT
  Age: 24 Year
  Sex: Female

DRUGS (4)
  1. SODIUM POLYSTYRENE SULFONATE [Suspect]
     Indication: HYPERKALAEMIA
     Dosage: 60 G
  2. SODIUM POLYSTYRENE SULFONATE [Suspect]
     Dosage: 50 G
  3. NEOSTIGMINE [Suspect]
     Indication: GASTROINTESTINAL MOTILITY DISORDER
     Route: 042
  4. NEOSTIGMINE [Suspect]
     Indication: ILEUS

REACTIONS (6)
  - ABDOMINAL COMPARTMENT SYNDROME [None]
  - GASTROINTESTINAL NECROSIS [None]
  - ILEUS [None]
  - INTESTINAL PERFORATION [None]
  - PERITONITIS [None]
  - PRODUCT DEPOSIT [None]
